FAERS Safety Report 9672261 (Version 1)
Quarter: 2013Q4

REPORT INFORMATION
  Report Type: Spontaneous
  Country: DK (occurrence: None)
  Receive Date: 20131105
  Receipt Date: 20131105
  Transmission Date: 20140711
  Serious: Yes (Death)
  Sender: FDA-Public Use
  Company Number: POI0573201300036

PATIENT
  Age: 34 Year
  Sex: Male
  Weight: 90 kg

DRUGS (14)
  1. VENLAFAXINE EXTENDED-RELEASE TABLETS [Suspect]
     Route: 048
     Dates: start: 200511, end: 200707
  2. OXYCODONE [Suspect]
     Dosage: AS REQUIRES
  3. ETHANOL [Suspect]
  4. PREGAMBLIN [Concomitant]
  5. PANTOPRAZOLE [Concomitant]
  6. QUETIAPINE [Concomitant]
  7. SIMVASTATIN [Concomitant]
  8. INSULIN DETEMIR [Concomitant]
  9. DIAZEPAM [Concomitant]
  10. NITAZEPAM [Concomitant]
  11. HALOPERIDOL [Concomitant]
  12. ZOLPIDEM [Concomitant]
  13. ETODOLAC [Concomitant]
  14. PHENOXYMETHYLPENICILLIN [Concomitant]

REACTIONS (4)
  - Completed suicide [None]
  - Overdose [None]
  - Sudden death [None]
  - Accidental death [None]
